FAERS Safety Report 22267927 (Version 2)
Quarter: 2023Q2

REPORT INFORMATION
  Report Type: Report from Study
  Country: NL (occurrence: NL)
  Receive Date: 20230430
  Receipt Date: 20230510
  Transmission Date: 20230721
  Serious: Yes (Other)
  Sender: FDA-Public Use
  Company Number: NL-002147023-NVSC2023NL093726

PATIENT
  Age: 42 Year
  Sex: Male

DRUGS (1)
  1. KESIMPTA [Suspect]
     Active Substance: OFATUMUMAB
     Indication: Relapsing multiple sclerosis
     Dosage: 1 DOSAGE FORM, QMO (ONCE EVERY 4 WEEKS)
     Route: 058
     Dates: start: 20230403

REACTIONS (8)
  - Oesophageal infection [Recovering/Resolving]
  - Feeling abnormal [Recovered/Resolved]
  - Genital infection fungal [Unknown]
  - Sinusitis fungal [Recovering/Resolving]
  - Pharyngitis [Recovering/Resolving]
  - Pyrexia [Recovered/Resolved]
  - Headache [Recovered/Resolved]
  - Myalgia [Recovered/Resolved]

NARRATIVE: CASE EVENT DATE: 20230403
